FAERS Safety Report 8805788 (Version 1)
Quarter: 2012Q4

REPORT INFORMATION
  Report Type: 
  Country: US (occurrence: US)
  Receive Date: 20120925
  Receipt Date: 20120925
  Transmission Date: 20130627
  Serious: No
  Sender: FDA-Public Use
  Company Number: US-009507513-1209USA008521

PATIENT
  Age: 40 Year
  Sex: Female

DRUGS (3)
  1. SINGULAIR [Suspect]
     Indication: ASTHMA
     Dosage: 10 mg, qd
     Route: 048
     Dates: start: 2004, end: 2009
  2. SINGULAIR [Suspect]
     Indication: HYPERSENSITIVITY
  3. ADVAIR [Concomitant]

REACTIONS (2)
  - Abasia [Recovered/Resolved]
  - Pain in extremity [Recovered/Resolved]
